FAERS Safety Report 6342892-5 (Version None)
Quarter: 2009Q3

REPORT INFORMATION
  Report Type: 
  Country: None (occurrence: None)
  Receive Date: 20090908
  Receipt Date: 20090903
  Transmission Date: 20100115
  Serious: Yes (Hospitalization)
  Sender: FDA-Public Use
  Company Number: FR-ROCHE-654406

PATIENT
  Age: 77 Year
  Sex: Male

DRUGS (2)
  1. ROCEPHIN [Suspect]
     Route: 058
     Dates: start: 20090602, end: 20090609
  2. OFLOCET [Suspect]
     Route: 048
     Dates: start: 20090602, end: 20090605

REACTIONS (1)
  - RHABDOMYOLYSIS [None]
